FAERS Safety Report 7981536-3 (Version None)
Quarter: 2011Q4

REPORT INFORMATION
  Report Type: 
  Country: None (occurrence: None)
  Receive Date: 20111215
  Receipt Date: 20111213
  Transmission Date: 20120403
  Serious: Yes (Other)
  Sender: FDA-Public Use
  Company Number: US-PFIZER INC-2011304179

PATIENT
  Age: 94 Year
  Sex: Female

DRUGS (1)
  1. LIPITOR [Suspect]
     Dosage: UNK
     Route: 048

REACTIONS (5)
  - DIABETES MELLITUS [None]
  - MUSCULOSKELETAL DISORDER [None]
  - CONFUSIONAL STATE [None]
  - BLINDNESS [None]
  - DYSGRAPHIA [None]
